FAERS Safety Report 18012170 (Version 4)
Quarter: 2020Q3

REPORT INFORMATION
  Report Type: Spontaneous
  Country: ES (occurrence: ES)
  Receive Date: 20200713
  Receipt Date: 20200807
  Transmission Date: 20201103
  Serious: Yes (Other)
  Sender: FDA-Public Use
  Company Number: ES-009507513-2007ESP003224

PATIENT
  Age: 19 Year
  Sex: Female
  Weight: 55 kg

DRUGS (3)
  1. DRETINELLE [Concomitant]
     Active Substance: DROSPIRENONE\ETHINYL ESTRADIOL
     Indication: ALOPECIA
     Dosage: 0.02MG/3MG, QD, SINCE 6 MONTHS ?1 YEAR
     Route: 048
     Dates: start: 202001
  2. BUDESONIDA ALDO UNION [Concomitant]
     Active Substance: BUDESONIDE
     Indication: ASTHMA
     Dosage: 10 MILLILITER PER DAY
     Route: 048
  3. ATOZET 10 MG/40 MG COMPRIMIDOS RECUBIERTOS CON PELICULA [Suspect]
     Active Substance: ATORVASTATIN CALCIUM\EZETIMIBE
     Indication: TYPE IIA HYPERLIPIDAEMIA
     Dosage: 10/40 MILLIGRAM, ONCE DAILY
     Route: 048
     Dates: start: 202005, end: 2020

REACTIONS (1)
  - Bradycardia [Recovered/Resolved]

NARRATIVE: CASE EVENT DATE: 20200620
